FAERS Safety Report 9045054 (Version 3)
Quarter: 2013Q2

REPORT INFORMATION
  Report Type: Spontaneous
  Country: US (occurrence: US)
  Receive Date: 20130130
  Receipt Date: 20130529
  Transmission Date: 20140414
  Serious: Yes (Hospitalization, Other)
  Sender: FDA-Public Use
  Company Number: US-009507513-1301USA013383

PATIENT
  Sex: Female
  Weight: 68.93 kg

DRUGS (1)
  1. NUVARING [Suspect]
     Indication: CONTRACEPTION
     Dosage: UNK
     Route: 067
     Dates: start: 20090909, end: 201002

REACTIONS (15)
  - Right ventricular failure [Unknown]
  - Pulmonary embolism [Unknown]
  - Vena cava filter insertion [Unknown]
  - Loss of consciousness [Recovered/Resolved]
  - Dizziness [Unknown]
  - Fatigue [Unknown]
  - Palpitations [Unknown]
  - Hypotension [Unknown]
  - Pulmonary infarction [Unknown]
  - Ventricular tachycardia [Unknown]
  - Pulmonary hypertension [Unknown]
  - Syncope [Unknown]
  - Vaginal infection [Unknown]
  - Iron deficiency anaemia [Unknown]
  - Pneumonia [Unknown]
